FAERS Safety Report 9313024 (Version 1)
Quarter: 2013Q2

REPORT INFORMATION
  Report Type: Spontaneous
  Country: US (occurrence: US)
  Receive Date: 20130528
  Receipt Date: 20130528
  Transmission Date: 20140414
  Serious: No
  Sender: FDA-Public Use
  Company Number: US-ABBOTT-13P-163-1065385-00

PATIENT
  Age: 65 Year
  Sex: Male

DRUGS (9)
  1. ANDROGEL [Suspect]
     Indication: BLOOD TESTOSTERONE DECREASED
     Dosage: 5 PUMPS DAILY OF ANDROGEL 1.62%
     Dates: start: 20130312, end: 20130316
  2. ANDROGEL [Suspect]
     Dosage: 4 PUMPS DAILY OF ANDROGEL 1.62%
     Dates: start: 20130317
  3. ANDROGEL [Suspect]
     Dosage: 5 PUMPS DAILY OF ANDROGEL 1.62%
  4. SIMVASTATIN [Concomitant]
     Indication: PRODUCT USED FOR UNKNOWN INDICATION
  5. GARLIC [Concomitant]
     Indication: PRODUCT USED FOR UNKNOWN INDICATION
  6. GINGER ROOT [Concomitant]
     Indication: PRODUCT USED FOR UNKNOWN INDICATION
  7. TURMERIC [Concomitant]
     Indication: PRODUCT USED FOR UNKNOWN INDICATION
  8. FISH OIL [Concomitant]
     Indication: PRODUCT USED FOR UNKNOWN INDICATION
  9. BIOTIN [Concomitant]
     Indication: PRODUCT USED FOR UNKNOWN INDICATION

REACTIONS (2)
  - Abnormal dreams [Recovered/Resolved]
  - Incorrect dose administered [Recovered/Resolved]
